FAERS Safety Report 11488405 (Version 1)
Quarter: 2015Q3

REPORT INFORMATION
  Report Type: Spontaneous
  Country: US (occurrence: US)
  Receive Date: 20150910
  Receipt Date: 20150910
  Transmission Date: 20151125
  Serious: Yes (Hospitalization, Other)
  Sender: FDA-Public Use
  Company Number: US-ROCHE-1588515

PATIENT
  Age: 49 Year
  Sex: Female
  Weight: 120.6 kg

DRUGS (6)
  1. COPEGUS [Suspect]
     Active Substance: RIBAVIRIN
     Route: 048
     Dates: start: 20150411
  2. COPEGUS [Suspect]
     Active Substance: RIBAVIRIN
     Indication: CHRONIC HEPATITIS C
     Route: 048
     Dates: start: 20150212, end: 20150403
  3. PEGASYS [Suspect]
     Active Substance: PEGINTERFERON ALFA-2A
     Indication: CHRONIC HEPATITIS C
     Route: 058
     Dates: start: 20150212, end: 20150403
  4. PEGASYS [Suspect]
     Active Substance: PEGINTERFERON ALFA-2A
     Route: 058
     Dates: start: 20150411
  5. SOVALDI [Suspect]
     Active Substance: SOFOSBUVIR
     Indication: CHRONIC HEPATITIS C
     Route: 048
     Dates: start: 20150212, end: 20150403
  6. SOVALDI [Suspect]
     Active Substance: SOFOSBUVIR
     Route: 048
     Dates: start: 20150411

REACTIONS (17)
  - Blood triglycerides increased [Recovered/Resolved]
  - Vomiting [Unknown]
  - Blood glucose increased [Recovered/Resolved]
  - Dizziness [Unknown]
  - Seizure [Recovered/Resolved]
  - Cerebrovascular accident [Unknown]
  - Balance disorder [Unknown]
  - Diarrhoea [Unknown]
  - Respiratory failure [Unknown]
  - Ammonia increased [Unknown]
  - Abdominal discomfort [Unknown]
  - Chest pain [Unknown]
  - Nausea [Unknown]
  - Dyspnoea [Unknown]
  - Bradycardia [Recovered/Resolved]
  - Anaemia [Unknown]
  - Fatigue [Unknown]

NARRATIVE: CASE EVENT DATE: 201504
